FAERS Safety Report 9783387 (Version 2)
Quarter: 2014Q1

REPORT INFORMATION
  Report Type: Report from Study
  Country: US (occurrence: US)
  Receive Date: 20131226
  Receipt Date: 20140113
  Transmission Date: 20141002
  Serious: Yes (Hospitalization)
  Sender: FDA-Public Use
  Company Number: US-ACTELION-A-US2013-92472

PATIENT
  Age: 60 Year
  Sex: Female

DRUGS (1)
  1. TRACLEER [Suspect]
     Indication: PULMONARY ARTERIAL HYPERTENSION
     Dosage: UNK
     Route: 048
     Dates: start: 201108

REACTIONS (4)
  - Procedural hypertension [Recovering/Resolving]
  - Coronary artery disease [Recovering/Resolving]
  - Coronary artery bypass [Recovering/Resolving]
  - Stent placement [Recovering/Resolving]
